FAERS Safety Report 4655642-5 (Version None)
Quarter: 2005Q2

REPORT INFORMATION
  Report Type: 
  Country: None (occurrence: None)
  Receive Date: 20050505
  Receipt Date: 20050415
  Transmission Date: 20051028
  Serious: Yes (Life-Threatening, Hospitalization, Other)
  Sender: FDA-Public Use
  Company Number: USA050495738

PATIENT
  Age: 7 Month
  Weight: 5 kg

DRUGS (1)
  1. HUMULIN R [Suspect]
     Indication: SURGERY
     Dosage: 6 U

REACTIONS (3)
  - BRAIN DAMAGE [None]
  - HYPOGLYCAEMIA [None]
  - PROCEDURAL COMPLICATION [None]
